FAERS Safety Report 6863818-1 (Version None)
Quarter: 2010Q3

REPORT INFORMATION
  Report Type: 
  Country: None (occurrence: None)
  Receive Date: 20100721
  Receipt Date: 20080307
  Transmission Date: 20110219
  Serious: No
  Sender: FDA-Public Use
  Company Number: US-PFIZER INC-2008023293

PATIENT
  Sex: Male
  Weight: 70 kg

DRUGS (9)
  1. CHANTIX [Suspect]
     Indication: SMOKING CESSATION THERAPY
     Dates: start: 20080305, end: 20080306
  2. ZANTAC [Concomitant]
  3. NEURONTIN [Concomitant]
  4. MIDRIN [Concomitant]
  5. PARAFON FORTE [Concomitant]
  6. TYLENOL [Concomitant]
  7. FENTANYL [Concomitant]
  8. SERETIDE MITE [Concomitant]
  9. ACETYLSALICYLIC ACID [Concomitant]

REACTIONS (3)
  - INSOMNIA [None]
  - PRURITUS [None]
  - RESTLESSNESS [None]
